FAERS Safety Report 9161026 (Version 2)
Quarter: 2013Q4

REPORT INFORMATION
  Report Type: Spontaneous
  Country: PT (occurrence: None)
  Receive Date: 20130122
  Receipt Date: 20131118
  Transmission Date: 20140711
  Serious: Yes (Life-Threatening)
  Sender: FDA-Public Use
  Company Number: GAM-002-13-PT

PATIENT
  Age: 45 Year
  Sex: Male

DRUGS (6)
  1. OCTAGAM [Suspect]
     Indication: MYASTHENIA GRAVIS
     Dosage: 40 G (1X 1 / D), INTRAVENOUS (NOT OTHERWISE SPECIFIED)
     Route: 042
     Dates: start: 20100726
  2. PYRIDOSTIGMINE [Concomitant]
  3. AZATHIOPRINE [Concomitant]
  4. PREDNISOLONE [Concomitant]
  5. AMOXICILLIN [Concomitant]
  6. CLAVULANIC ACID [Concomitant]

REACTIONS (7)
  - Pulmonary embolism [None]
  - Splenic infarction [None]
  - Cerebrovascular accident [None]
  - Cardio-respiratory arrest [None]
  - Dyspnoea [None]
  - Respiratory tract infection [None]
  - Cardiac failure [None]
